FAERS Safety Report 5883705-5 (Version None)
Quarter: 2008Q3

REPORT INFORMATION
  Report Type: 
  Country: None (occurrence: None)
  Receive Date: 20080912
  Receipt Date: 20080912
  Transmission Date: 20090109
  Serious: Yes (Other)
  Sender: FDA-Public Use
  Company Number: None

PATIENT
  Age: 48 Year
  Sex: Female
  Weight: 65.318 kg

DRUGS (1)
  1. FOSAMAX [Suspect]
     Indication: OSTEOPENIA
     Dosage: 75 MG WEEKLY PO
     Route: 048
     Dates: start: 20080201, end: 20080601

REACTIONS (2)
  - MUSCULOSKELETAL PAIN [None]
  - TENDERNESS [None]
